FAERS Safety Report 7872752-X (Version None)
Quarter: 2011Q4

REPORT INFORMATION
  Report Type: 
  Country: None (occurrence: None)
  Receive Date: 20111030
  Receipt Date: 20061110
  Transmission Date: 20120403
  Serious: No
  Sender: FDA-Public Use
  Company Number: PHHY2006MX05221

PATIENT
  Sex: Female

DRUGS (1)
  1. ZELMAC [Suspect]

REACTIONS (2)
  - GROIN PAIN [None]
  - CHOLELITHIASIS [None]
